FAERS Safety Report 11563981 (Version 10)
Quarter: 2018Q2

REPORT INFORMATION
  Report Type: Report from Study
  Country: RU (occurrence: RU)
  Receive Date: 20150928
  Receipt Date: 20180521
  Transmission Date: 20180711
  Serious: Yes (Life-Threatening, Hospitalization)
  Sender: FDA-Public Use
  Company Number: RU-BAXALTA-2015BLT001862

PATIENT
  Age: 43 Year
  Sex: Female
  Weight: 76 kg

DRUGS (10)
  1. VON WILLEBRAND FACTOR [Suspect]
     Active Substance: VON WILLEBRAND FACTOR HUMAN
     Indication: VON WILLEBRAND^S DISEASE
     Dosage: 3720 IU, ONCE
     Route: 042
     Dates: start: 20150817, end: 20150817
  2. DABIGATRAN [Concomitant]
     Active Substance: DABIGATRAN
     Indication: THROMBOSIS PROPHYLAXIS
     Dosage: UNK
     Route: 048
  3. ADVATE [Suspect]
     Active Substance: ANTIHEMOPHILIC FACTOR, HUMAN RECOMBINANT
     Indication: VON WILLEBRAND^S DISEASE
     Dosage: 1100 IU, ONCE
     Route: 042
     Dates: start: 20150909, end: 20150909
  4. VON WILLEBRAND FACTOR [Suspect]
     Active Substance: VON WILLEBRAND FACTOR HUMAN
     Dosage: 4340 IU, ONCE
     Route: 042
     Dates: start: 20150908, end: 20150908
  5. FERINJECT [Concomitant]
     Active Substance: FERRIC CARBOXYMALTOSE
     Indication: IRON DEFICIENCY ANAEMIA
     Dosage: 4.0 ML, 1X A DAY
     Route: 042
  6. VON WILLEBRAND FACTOR [Suspect]
     Active Substance: VON WILLEBRAND FACTOR HUMAN
     Dosage: 2480 IU, ONCE
     Route: 042
     Dates: start: 20150909, end: 20150909
  7. VON WILLEBRAND FACTOR [Suspect]
     Active Substance: VON WILLEBRAND FACTOR HUMAN
     Dosage: 1240 IU, ONCE
     Route: 042
     Dates: start: 20150911, end: 20150911
  8. VON WILLEBRAND FACTOR [Suspect]
     Active Substance: VON WILLEBRAND FACTOR HUMAN
     Dosage: 1240 IU, 1X A DAY
     Route: 042
     Dates: start: 20150913, end: 20150923
  9. VON WILLEBRAND FACTOR [Suspect]
     Active Substance: VON WILLEBRAND FACTOR HUMAN
     Dosage: 3720 IU, ONCE
     Route: 042
     Dates: start: 20150910, end: 20150910
  10. DICLOFENAC [Concomitant]
     Active Substance: DICLOFENAC
     Indication: PRODUCT USED FOR UNKNOWN INDICATION
     Dosage: 100 UNK, UNK
     Route: 048
     Dates: start: 2006, end: 20150905

REACTIONS (1)
  - Deep vein thrombosis [Recovered/Resolved]

NARRATIVE: CASE EVENT DATE: 20150916
